FAERS Safety Report 9168841 (Version 2)
Quarter: 2013Q1

REPORT INFORMATION
  Report Type: Spontaneous
  Country: FR (occurrence: None)
  Receive Date: 20130307
  Receipt Date: 20130329
  Transmission Date: 20140127
  Serious: Yes (Hospitalization)
  Sender: FDA-Public Use
  Company Number: SYM-2013-01359

PATIENT
  Age: 60 Year
  Sex: Female

DRUGS (4)
  1. FLAGYL [Suspect]
     Indication: DIARRHOEA
     Dosage: UNKNOWN, ORAL
     Route: 048
     Dates: start: 20121105
  2. NIBIOL [Suspect]
     Indication: URINARY TRACT INFECTION
     Dosage: UNKNOWN, ORAL
     Route: 048
     Dates: start: 201210, end: 201210
  3. NOROXINE [Suspect]
     Indication: URINARY TRACT INFECTION
     Dosage: UNKNOWN, ORAL
     Route: 048
     Dates: start: 201210, end: 201210
  4. ZINNAT [Suspect]
     Indication: NASOPHARYNGITIS
     Dosage: UNKNOWN , ORAL
     Route: 048
     Dates: start: 201209, end: 201209

REACTIONS (11)
  - Abdominal pain upper [None]
  - Hepatitis [None]
  - Pyelonephritis acute [None]
  - Diarrhoea [None]
  - Pseudomembranous colitis [None]
  - Septic shock [None]
  - Tremor [None]
  - Hyponatraemia [None]
  - Hypokalaemia [None]
  - Cell death [None]
  - Cholestasis [None]
